FAERS Safety Report 4558097-4 (Version None)
Quarter: 2005Q1

REPORT INFORMATION
  Report Type: 
  Country: None (occurrence: None)
  Receive Date: 20050121
  Receipt Date: 20040302
  Transmission Date: 20050727
  Serious: No
  Sender: FDA-Public Use
  Company Number: US-BRISTOL-MYERS SQUIBB COMPANY-12745774

PATIENT
  Sex: Male

DRUGS (4)
  1. SERZONE [Suspect]
     Route: 048
     Dates: end: 20020301
  2. LITHIUM [Concomitant]
  3. INDERAL [Concomitant]
  4. INDERAL [Concomitant]

REACTIONS (12)
  - DISTURBANCE IN ATTENTION [None]
  - DIZZINESS [None]
  - EPISTAXIS [None]
  - GASTROOESOPHAGEAL REFLUX DISEASE [None]
  - HEADACHE [None]
  - HEPATIC ENZYME INCREASED [None]
  - HEPATIC STEATOSIS [None]
  - HYPERTENSION [None]
  - INSOMNIA [None]
  - MUSCLE SPASMS [None]
  - PRURITUS ANI [None]
  - SYNCOPE [None]
